FAERS Safety Report 21161311 (Version 1)
Quarter: 2022Q3

REPORT INFORMATION
  Report Type: Spontaneous
  Country: US (occurrence: None)
  Receive Date: 20220802
  Receipt Date: 20220802
  Transmission Date: 20221026
  Serious: Yes (Death, Hospitalization)
  Sender: FDA-Public Use
  Company Number: None

PATIENT
  Sex: Male
  Weight: 83 kg

DRUGS (1)
  1. GEMCITABINE HYDROCHLORIDE [Suspect]
     Active Substance: GEMCITABINE HYDROCHLORIDE
     Dates: end: 20220623

REACTIONS (15)
  - Disease progression [None]
  - Dyspnoea [None]
  - Emphysema [None]
  - Interstitial lung disease [None]
  - Pneumonia [None]
  - Chronic obstructive pulmonary disease [None]
  - Pulmonary artery dilatation [None]
  - Hypertension [None]
  - Lung disorder [None]
  - Adenocarcinoma metastatic [None]
  - Hilar lymphadenopathy [None]
  - Retroperitoneal lymphadenopathy [None]
  - Pleural effusion [None]
  - Pulmonary embolism [None]
  - Pulmonary fibrosis [None]

NARRATIVE: CASE EVENT DATE: 20220629
